FAERS Safety Report 14168916 (Version 1)
Quarter: 2017Q4

REPORT INFORMATION
  Report Type: Spontaneous
  Country: US (occurrence: US)
  Receive Date: 20171108
  Receipt Date: 20171108
  Transmission Date: 20180321
  Serious: No
  Sender: FDA-Public Use
  Company Number: US-PFIZER INC-2017475712

PATIENT
  Age: 87 Year
  Sex: Female

DRUGS (3)
  1. GABAPENTIN. [Suspect]
     Active Substance: GABAPENTIN
     Indication: PAIN IN EXTREMITY
     Dosage: 300MG CAPSULES; TWO IN THE MORNING AND TWO IN THE EVENING
     Route: 048
  2. BENICAR [Concomitant]
     Active Substance: OLMESARTAN MEDOXOMIL
     Indication: BLOOD PRESSURE ABNORMAL
     Dosage: UNKNOWN DOSE; ONCE PER DAY IN THE MORNING
  3. DEZIDE [Concomitant]
     Indication: DIURETIC THERAPY
     Dosage: UNKNOWN DOSE; ONCE PER DAY IN THE MORNING

REACTIONS (3)
  - Intentional product use issue [Unknown]
  - Product use in unapproved indication [Unknown]
  - Fatigue [Not Recovered/Not Resolved]
